FAERS Safety Report 21971194 (Version 1)
Quarter: 2023Q1

REPORT INFORMATION
  Report Type: Spontaneous
  Country: US (occurrence: US)
  Receive Date: 20230209
  Receipt Date: 20230209
  Transmission Date: 20230417
  Serious: Yes (Other)
  Sender: FDA-Public Use
  Company Number: US-PADAGIS-2023PAD00117

PATIENT

DRUGS (8)
  1. CYCLOSPORINE [Suspect]
     Active Substance: CYCLOSPORINE
     Indication: Peripheral T-cell lymphoma unspecified
     Dosage: 100 MG, BID (TWICE DAILY)
     Route: 065
  2. CYCLOSPORINE [Suspect]
     Active Substance: CYCLOSPORINE
     Dosage: 150 MG, BID (TWICE DAILY)
     Route: 065
  3. METHOTREXATE [Suspect]
     Active Substance: METHOTREXATE
     Indication: Peripheral T-cell lymphoma unspecified
     Dosage: 7.5 MG WEEKLY
     Route: 065
  4. METHOTREXATE [Suspect]
     Active Substance: METHOTREXATE
     Dosage: 25 MG WEEKLY (DOSE INCREASED)
     Route: 065
  5. PREDNISONE [Suspect]
     Active Substance: PREDNISONE
     Indication: Peripheral T-cell lymphoma unspecified
     Dosage: 40 MG, DAILY
     Route: 065
  6. PREDNISONE [Suspect]
     Active Substance: PREDNISONE
     Dosage: 10 MG WEEKLY (DOSE TAPERED)
     Route: 065
  7. HYDROXYCHLOROQUINE [Suspect]
     Active Substance: HYDROXYCHLOROQUINE
     Indication: Peripheral T-cell lymphoma unspecified
     Dosage: 200 MG, BID (TWICE DAILY)
     Route: 065
  8. TRIAMCINOLONE ACETONIDE [Concomitant]
     Active Substance: TRIAMCINOLONE ACETONIDE
     Indication: Peripheral T-cell lymphoma unspecified
     Dosage: UNK
     Route: 026

REACTIONS (1)
  - Drug ineffective for unapproved indication [Unknown]
